FAERS Safety Report 21873480 (Version 1)
Quarter: 2023Q1

REPORT INFORMATION
  Report Type: Report from Study
  Country: US (occurrence: US)
  Receive Date: 20230117
  Receipt Date: 20230117
  Transmission Date: 20230418
  Serious: No
  Sender: FDA-Public Use
  Company Number: US-ABBVIE-4273076

PATIENT
  Age: 66 Year
  Sex: Male

DRUGS (15)
  1. VENCLEXTA [Suspect]
     Active Substance: VENETOCLAX
     Indication: Acute myeloid leukaemia
     Route: 048
  2. Fish Oil Concentrate Oral Capsule 1 [Concomitant]
     Indication: Product used for unknown indication
  3. VITAMIN D3 [Concomitant]
     Active Substance: CHOLECALCIFEROL
     Indication: Product used for unknown indication
  4. MAGNESIUM OXIDE [Concomitant]
     Active Substance: MAGNESIUM OXIDE
     Indication: Product used for unknown indication
  5. OTC NUTRITIONAL SUPPLEMENT [Concomitant]
     Indication: Product used for unknown indication
  6. Multivitamin Adult Oral Tablet [Concomitant]
     Indication: Product used for unknown indication
  7. valACYclovir HCl Oral Tablet 500 MG [Concomitant]
     Indication: Product used for unknown indication
  8. Magnesium-Vitamin D3-Turmeric Oral [Concomitant]
     Indication: Product used for unknown indication
  9. Saw Palmetto Oral Capsule 500 MG [Concomitant]
     Indication: Product used for unknown indication
  10. Posaconazole Oral Tablet Delayed Re [Concomitant]
     Indication: Product used for unknown indication
  11. Levomefolate Calcium  Powder [Concomitant]
     Indication: Product used for unknown indication
  12. Ondansetron HCl Oral Tablet 4 MG [Concomitant]
     Indication: Product used for unknown indication
  13. Turmeric  Powder [Concomitant]
     Indication: Product used for unknown indication
  14. CVS Fish Oil Oral Capsule 1000 MG [Concomitant]
     Indication: Product used for unknown indication
  15. Cerefolin NAC Oral Tablet 6-2-600 M [Concomitant]
     Indication: Product used for unknown indication

REACTIONS (2)
  - Asthenia [Unknown]
  - Dizziness [Unknown]

NARRATIVE: CASE EVENT DATE: 20230112
